FAERS Safety Report 18877283 (Version 1)
Quarter: 2021Q1

REPORT INFORMATION
  Report Type: Spontaneous
  Country: US (occurrence: US)
  Receive Date: 20210210
  Receipt Date: 20210210
  Transmission Date: 20210420
  Serious: Yes (Other)
  Sender: FDA-Public Use
  Company Number: US-ABBVIE-21K-163-3762886-00

PATIENT
  Age: 80 Year
  Sex: Male
  Weight: 93.07 kg

DRUGS (2)
  1. VENCLEXTA [Suspect]
     Active Substance: VENETOCLAX
     Indication: ACUTE MYELOID LEUKAEMIA RECURRENT
     Dosage: 2 CYCLES
     Route: 048
     Dates: start: 202009, end: 202011
  2. VENCLEXTA [Suspect]
     Active Substance: VENETOCLAX
     Dosage: 100 MG TAB IN HALF AND TAKE 200 MG 2 TABLETS CUT IN THE MORNING AND 200 MG IN THE EVENING
     Route: 048
     Dates: start: 202011

REACTIONS (4)
  - Cytopenia [Unknown]
  - Dysphagia [Not Recovered/Not Resolved]
  - Off label use [Unknown]
  - Retching [Not Recovered/Not Resolved]

NARRATIVE: CASE EVENT DATE: 202009
